FAERS Safety Report 8965698 (Version 1)
Quarter: 2012Q4

REPORT INFORMATION
  Report Type: Spontaneous
  Country: US (occurrence: None)
  Receive Date: 20121212
  Receipt Date: 20121212
  Transmission Date: 20130627
  Serious: Yes (Other)
  Sender: FDA-Public Use
  Company Number: None

PATIENT
  Age: 10 Year
  Sex: Male
  Weight: 40.82 kg

DRUGS (1)
  1. TAMIFLU [Suspect]
     Indication: FLU
     Dates: start: 20101223, end: 20110102

REACTIONS (5)
  - Nightmare [None]
  - Anxiety [None]
  - Fear [None]
  - Obsessive-compulsive disorder [None]
  - Hallucination [None]
